FAERS Safety Report 6312915-8 (Version None)
Quarter: 2009Q3

REPORT INFORMATION
  Report Type: 
  Country: None (occurrence: None)
  Receive Date: 20090817
  Receipt Date: 20090817
  Transmission Date: 20100115
  Serious: Yes (Life-Threatening)
  Sender: FDA-Public Use
  Company Number: None

PATIENT
  Age: 63 Year
  Sex: Male
  Weight: 96.6162 kg

DRUGS (1)
  1. ZICAM [Suspect]
     Indication: SINUSITIS
     Dates: start: 20081001, end: 20081231

REACTIONS (3)
  - AGEUSIA [None]
  - ANOSMIA [None]
  - THROAT TIGHTNESS [None]
